FAERS Safety Report 17006791 (Version 1)
Quarter: 2019Q4

REPORT INFORMATION
  Report Type: Spontaneous
  Country: US (occurrence: US)
  Receive Date: 20191107
  Receipt Date: 20191107
  Transmission Date: 20200122
  Serious: No
  Sender: FDA-Public Use
  Company Number: US-TARO-2019TAR00711

PATIENT
  Sex: Female

DRUGS (1)
  1. ADAPALENE AND BENZOYL PEROXIDE [Suspect]
     Active Substance: ADAPALENE\BENZOYL PEROXIDE
     Route: 061

REACTIONS (2)
  - Application site pruritus [Unknown]
  - Application site irritation [Unknown]
